FAERS Safety Report 13487087 (Version 1)
Quarter: 2017Q2

REPORT INFORMATION
  Report Type: Spontaneous
  Country: KP (occurrence: KP)
  Receive Date: 20170426
  Receipt Date: 20170426
  Transmission Date: 20170830
  Serious: Yes (Death, Hospitalization, Other)
  Sender: FDA-Public Use
  Company Number: KP-APOPHARMA USA, INC.-2017AP010706

PATIENT
  Age: 71 Year
  Sex: Female

DRUGS (2)
  1. ALKERAN [Suspect]
     Active Substance: MELPHALAN
     Indication: PLASMA CELL MYELOMA
     Dosage: 13 CYCLES
     Route: 065
  2. PREDNISONE. [Concomitant]
     Active Substance: PREDNISONE
     Indication: PLASMA CELL MYELOMA
     Dosage: 13 CYCLES
     Route: 065

REACTIONS (3)
  - Cerebral infarction [Unknown]
  - Sepsis [Fatal]
  - Acute promyelocytic leukaemia [Unknown]
